FAERS Safety Report 25421177 (Version 2)
Quarter: 2025Q3

REPORT INFORMATION
  Report Type: Spontaneous
  Country: US (occurrence: US)
  Receive Date: 20250611
  Receipt Date: 20250904
  Transmission Date: 20251021
  Serious: No
  Sender: SANOFI AVENTIS
  Company Number: US-SA-2025SA164473

PATIENT
  Age: 59 Year
  Sex: Female

DRUGS (1)
  1. DUPIXENT [Suspect]
     Active Substance: DUPILUMAB
     Indication: Asthma
     Dosage: 300 MG, QOW
     Route: 058
     Dates: start: 20250226

REACTIONS (4)
  - Injection site haemorrhage [Unknown]
  - Nasopharyngitis [Not Recovered/Not Resolved]
  - Eczema [Unknown]
  - Injection site pain [Unknown]

NARRATIVE: CASE EVENT DATE: 20250101
